FAERS Safety Report 5139877-3 (Version None)
Quarter: 2006Q4

REPORT INFORMATION
  Report Type: 
  Country: None (occurrence: None)
  Receive Date: 20061026
  Receipt Date: 20061026
  Transmission Date: 20070319
  Serious: Yes (Hospitalization)
  Sender: FDA-Public Use
  Company Number: None

PATIENT
  Sex: Male
  Weight: 41.7 kg

DRUGS (2)
  1. DAYTRANA [Suspect]
     Indication: ATTENTION DEFICIT/HYPERACTIVITY DISORDER
     Dosage: 1 PATCH  Q 9 HOURS   TOPICALLY (DURATION: ESTIMATE: ~ 3 DAYS)
     Route: 061
  2. STRATTERA [Concomitant]

REACTIONS (3)
  - CHEST PAIN [None]
  - COORDINATION ABNORMAL [None]
  - HYPOAESTHESIA [None]
